FAERS Safety Report 7415690-9 (Version None)
Quarter: 2011Q2

REPORT INFORMATION
  Report Type: 
  Country: None (occurrence: None)
  Receive Date: 20110414
  Receipt Date: 20110408
  Transmission Date: 20111010
  Serious: Yes (Other)
  Sender: FDA-Public Use
  Company Number: GB-MERCK-1104GBR00042

PATIENT
  Age: 75 Year
  Sex: Male
  Weight: 73 kg

DRUGS (9)
  1. PRINIVIL [Suspect]
     Indication: CORONARY ARTERY DISEASE
     Route: 048
     Dates: start: 20070716, end: 20110106
  2. DIPYRIDAMOLE [Concomitant]
     Route: 065
  3. SOLIFENACIN SUCCINATE [Concomitant]
     Route: 065
  4. AMLODIPINE [Concomitant]
     Route: 065
  5. PRINIVIL [Suspect]
     Indication: HYPERTENSION
     Route: 048
     Dates: start: 20070716, end: 20110106
  6. ASPIRIN [Concomitant]
     Route: 065
  7. OMEPRAZOLE [Concomitant]
     Route: 065
  8. ROSUVASTATIN CALCIUM [Concomitant]
     Route: 065
  9. PROSCAR [Concomitant]
     Route: 048

REACTIONS (5)
  - LIP SWELLING [None]
  - RASH GENERALISED [None]
  - HYPERSENSITIVITY [None]
  - GENITAL RASH [None]
  - RASH [None]
